FAERS Safety Report 7561788-4 (Version None)
Quarter: 2011Q2

REPORT INFORMATION
  Report Type: 
  Country: None (occurrence: None)
  Receive Date: 20110621
  Receipt Date: 20110610
  Transmission Date: 20111010
  Serious: Yes (Hospitalization)
  Sender: FDA-Public Use
  Company Number: US-BAXTER-2011BH018939

PATIENT
  Age: 72 Year
  Sex: Female

DRUGS (1)
  1. DIANEAL [Suspect]
     Indication: PERITONEAL DIALYSIS
     Route: 033
     Dates: start: 20101201

REACTIONS (6)
  - GASTROINTESTINAL HAEMORRHAGE [None]
  - BRONCHITIS [None]
  - DEHYDRATION [None]
  - POLYP [None]
  - ORTHOSTATIC HYPOTENSION [None]
  - PNEUMONIA [None]
